FAERS Safety Report 25235608 (Version 1)
Quarter: 2025Q2

REPORT INFORMATION
  Report Type: Spontaneous
  Country: US (occurrence: None)
  Receive Date: 20250424
  Receipt Date: 20250424
  Transmission Date: 20250717
  Serious: No
  Sender: FDA-CTU
  Company Number: None

PATIENT

DRUGS (1)
  1. TERIFLUNOMIDE [Suspect]
     Active Substance: TERIFLUNOMIDE

REACTIONS (8)
  - Drug ineffective [None]
  - Depression [None]
  - Initial insomnia [None]
  - Asthenia [None]
  - Walking aid user [None]
  - Sleep disorder [None]
  - Disturbance in attention [None]
  - Hypokinesia [None]
